FAERS Safety Report 5212715-6 (Version None)
Quarter: 2006Q4

REPORT INFORMATION
  Report Type: 
  Country: None (occurrence: None)
  Receive Date: 20061115
  Receipt Date: 20060817
  Transmission Date: 20070319
  Serious: Yes (Disabling)
  Sender: FDA-Public Use
  Company Number: 200615152BWH

PATIENT
  Age: 47 Year
  Sex: Male

DRUGS (4)
  1. NEXAVAR [Suspect]
     Indication: RENAL NEOPLASM
     Dosage: SEE IMAGE, ORAL
     Route: 048
     Dates: start: 20060625, end: 20060723
  2. NEXAVAR [Suspect]
     Indication: RENAL NEOPLASM
     Dosage: SEE IMAGE, ORAL
     Route: 048
     Dates: start: 20060803, end: 20060809
  3. NEXAVAR [Suspect]
     Indication: RENAL NEOPLASM
     Dosage: SEE IMAGE, ORAL
     Route: 048
     Dates: start: 20060810, end: 20060816
  4. NEXAVAR [Suspect]
     Indication: RENAL NEOPLASM
     Dosage: SEE IMAGE, ORAL
     Route: 048
     Dates: start: 20060817

REACTIONS (7)
  - ABASIA [None]
  - BLISTER [None]
  - DISCOMFORT [None]
  - GAIT DISTURBANCE [None]
  - HYPOTRICHOSIS [None]
  - PALMAR-PLANTAR ERYTHRODYSAESTHESIA SYNDROME [None]
  - STOMATITIS [None]
